FAERS Safety Report 8459956-2 (Version None)
Quarter: 2012Q2

REPORT INFORMATION
  Report Type: 
  Country: None (occurrence: None)
  Receive Date: 20120622
  Receipt Date: 20120619
  Transmission Date: 20120825
  Serious: Yes (Other)
  Sender: FDA-Public Use
  Company Number: PHEH2012US012196

PATIENT
  Sex: Female

DRUGS (1)
  1. LESCOL XL [Suspect]
     Dosage: 80 MG DAILY

REACTIONS (1)
  - PULMONARY FIBROSIS [None]
